FAERS Safety Report 14370470 (Version 1)
Quarter: 2018Q1

REPORT INFORMATION
  Report Type: Spontaneous
  Country: US (occurrence: US)
  Receive Date: 20180110
  Receipt Date: 20180110
  Transmission Date: 20180509
  Serious: No
  Sender: FDA-Public Use
  Company Number: US-PFIZER INC-2018008876

PATIENT
  Age: 48 Year
  Sex: Female

DRUGS (10)
  1. ENBREL [Suspect]
     Active Substance: ETANERCEPT
     Dosage: 50 MG, QWK
     Route: 065
     Dates: end: 2017
  2. AZITHROMYCIN ANHYDROUS. [Suspect]
     Active Substance: AZITHROMYCIN ANHYDROUS
     Dosage: UNK
     Route: 065
  3. CORTISONE [Concomitant]
     Active Substance: CORTISONE\HYDROCORTISONE
     Indication: RHEUMATOID ARTHRITIS
     Dosage: UNK
  4. ORTHOVISC [Suspect]
     Active Substance: HYALURONIC ACID
     Dosage: UNK
     Route: 065
     Dates: end: 201704
  5. ENBREL [Suspect]
     Active Substance: ETANERCEPT
     Indication: RHEUMATOID ARTHRITIS
     Dosage: 50 MG, QWK
     Route: 065
  6. ENBREL [Suspect]
     Active Substance: ETANERCEPT
     Dosage: 50 MG, QWK
     Route: 065
     Dates: start: 2017
  7. ABX (AMBROXOL HYDROCHLORIDE) [Suspect]
     Active Substance: AMBROXOL HYDROCHLORIDE
     Dosage: UNK
     Route: 065
  8. FOLIC ACID. [Concomitant]
     Active Substance: FOLIC ACID
     Dosage: UNK
  9. TYLENOL [Concomitant]
     Active Substance: ACETAMINOPHEN
     Dosage: UNK
  10. MTX [Concomitant]
     Active Substance: METHOTREXATE SODIUM
     Dosage: UNK

REACTIONS (16)
  - Pain [Unknown]
  - Skin lesion [Unknown]
  - Feeling abnormal [Unknown]
  - Rash [Unknown]
  - Infection [Recovered/Resolved]
  - Arthralgia [Not Recovered/Not Resolved]
  - Rash papular [Unknown]
  - Nasopharyngitis [Unknown]
  - Malaise [Unknown]
  - Psoriasis [Unknown]
  - Skin infection [Unknown]
  - Tooth disorder [Unknown]
  - Asthenia [Unknown]
  - Papule [Not Recovered/Not Resolved]
  - Oral infection [Unknown]
  - Bite [Unknown]

NARRATIVE: CASE EVENT DATE: 201708
